FAERS Safety Report 8421707-5 (Version None)
Quarter: 2012Q2

REPORT INFORMATION
  Report Type: 
  Country: None (occurrence: None)
  Receive Date: 20120608
  Receipt Date: 20111026
  Transmission Date: 20120825
  Serious: No
  Sender: FDA-Public Use
  Company Number: US-GLAXOSMITHKLINE-A0950729A

PATIENT
  Age: 80 Year
  Sex: Female

DRUGS (1)
  1. ALTABAX [Suspect]
     Indication: WOUND
     Route: 061
     Dates: start: 20110921, end: 20110921

REACTIONS (16)
  - EYE SWELLING [None]
  - PERIORBITAL OEDEMA [None]
  - PAIN [None]
  - EAR INFECTION [None]
  - SWELLING FACE [None]
  - SKIN INJURY [None]
  - AURICULAR SWELLING [None]
  - SKIN EXFOLIATION [None]
  - EYELID FUNCTION DISORDER [None]
  - SCAB [None]
  - PRODUCT QUALITY ISSUE [None]
  - EAR PRURITUS [None]
  - HYPERSENSITIVITY [None]
  - PRURITUS [None]
  - EAR INJURY [None]
  - DRY SKIN [None]
